FAERS Safety Report 8205695-2 (Version None)
Quarter: 2012Q1

REPORT INFORMATION
  Report Type: 
  Country: None (occurrence: None)
  Receive Date: 20120313
  Receipt Date: 20120301
  Transmission Date: 20120608
  Serious: Yes (Other)
  Sender: FDA-Public Use
  Company Number: US-ELI_LILLY_AND_COMPANY-US201109006331

PATIENT
  Sex: Female

DRUGS (3)
  1. FORTEO [Suspect]
     Indication: OSTEOPOROSIS
     Dosage: 20 UG, QD
     Route: 058
     Dates: start: 20110916
  2. LYRICA [Concomitant]
     Dosage: UNK
     Dates: start: 20110916
  3. ANALGESICS [Concomitant]
     Indication: PAIN
     Route: 008

REACTIONS (9)
  - EYE SWELLING [None]
  - OPEN FRACTURE [None]
  - DRY MOUTH [None]
  - NERVE INJURY [None]
  - TREMOR [None]
  - FEAR [None]
  - DECREASED APPETITE [None]
  - PROCEDURAL PAIN [None]
  - OEDEMA PERIPHERAL [None]
